FAERS Safety Report 19821891 (Version 1)
Quarter: 2021Q3

REPORT INFORMATION
  Report Type: Spontaneous
  Country: CN (occurrence: CN)
  Receive Date: 20210913
  Receipt Date: 20210913
  Transmission Date: 20211014
  Serious: Yes (Other)
  Sender: FDA-Public Use
  Company Number: CN-SA-2021SA300288

PATIENT
  Age: 50 Year
  Sex: Male
  Weight: 70 kg

DRUGS (3)
  1. ELOXATIN [Suspect]
     Active Substance: OXALIPLATIN
     Dosage: 150 MG, TOTAL
  2. ELOXATIN [Suspect]
     Active Substance: OXALIPLATIN
     Indication: COLON CANCER RECURRENT
     Dosage: 150 MG, QD
     Route: 042
     Dates: start: 20210827, end: 20210827
  3. GLUCOSE [Concomitant]
     Active Substance: DEXTROSE
     Dosage: 50 ML, QD
     Route: 042
     Dates: start: 20210827, end: 20210827

REACTIONS (2)
  - Rash [Recovered/Resolved]
  - Tachypnoea [Recovered/Resolved]

NARRATIVE: CASE EVENT DATE: 20210827
